FAERS Safety Report 6491405-6 (Version None)
Quarter: 2009Q4

REPORT INFORMATION
  Report Type: 
  Country: None (occurrence: None)
  Receive Date: 20091211
  Receipt Date: 20091107
  Transmission Date: 20100525
  Serious: No
  Sender: FDA-Public Use
  Company Number: JP-BAXTER-2009BH017242

PATIENT
  Age: 54 Year
  Sex: Male
  Weight: 58 kg

DRUGS (3)
  1. EXTRANEAL [Suspect]
     Indication: RENAL FAILURE
     Route: 033
  2. DIANEAL PD-2 W/ DEXTROSE 1.5% [Suspect]
     Indication: RENAL FAILURE
     Route: 033
  3. DIANEAL PD-2 W/ DEXTROSE 1.5% [Suspect]
     Indication: RENAL FAILURE
     Route: 033

REACTIONS (1)
  - HYPOGLYCAEMIA [None]
